FAERS Safety Report 16261840 (Version 1)
Quarter: 2019Q2

REPORT INFORMATION
  Report Type: Spontaneous
  Country: BR (occurrence: BR)
  Receive Date: 20190501
  Receipt Date: 20190501
  Transmission Date: 20190711
  Serious: Yes (Hospitalization, Other)
  Sender: FDA-Public Use
  Company Number: BR-JNJFOC-20190436438

PATIENT
  Age: 32 Year
  Sex: Male

DRUGS (2)
  1. INVEGA SUSTENNA [Suspect]
     Active Substance: PALIPERIDONE PALMITATE
     Indication: BIPOLAR DISORDER
     Route: 030
     Dates: start: 2017
  2. INVEGA SUSTENNA [Suspect]
     Active Substance: PALIPERIDONE PALMITATE
     Indication: DELIRIUM
     Route: 030
     Dates: start: 2017

REACTIONS (8)
  - Off label use [Unknown]
  - Bipolar disorder [Unknown]
  - Diabetes mellitus [Unknown]
  - Product use in unapproved indication [Unknown]
  - Coma [Unknown]
  - Inappropriate schedule of product administration [Unknown]
  - Somnolence [Unknown]
  - Toxicity to various agents [Unknown]
